FAERS Safety Report 6980032-X (Version None)
Quarter: 2010Q3

REPORT INFORMATION
  Report Type: 
  Country: None (occurrence: None)
  Receive Date: 20100914
  Receipt Date: 20100908
  Transmission Date: 20110219
  Serious: Yes (Hospitalization)
  Sender: FDA-Public Use
  Company Number: FR-PFIZER INC-2006086671

PATIENT
  Age: 45 Year
  Sex: Male
  Weight: 71 kg

DRUGS (8)
  1. SUNITINIB MALATE [Suspect]
     Indication: RENAL CELL CARCINOMA
     Dosage: 50 MG, 1X/DAY
     Route: 048
     Dates: start: 20051226
  2. NEXIUM [Concomitant]
     Route: 048
     Dates: start: 20060220
  3. LEVOTHYROXINE SODIUM [Concomitant]
     Route: 048
     Dates: start: 20060406
  4. OXYCONTIN [Concomitant]
     Route: 048
     Dates: start: 20060522, end: 20060706
  5. OXYCODONE HCL [Concomitant]
     Route: 048
     Dates: start: 20060522, end: 20060706
  6. FERROUS SULFATE [Concomitant]
     Route: 048
     Dates: start: 20060602
  7. DURAGESIC-100 [Concomitant]
     Route: 062
     Dates: start: 20060601
  8. GABAPENTIN [Concomitant]
     Route: 048
     Dates: start: 20060706

REACTIONS (1)
  - PLEURAL EFFUSION [None]
